FAERS Safety Report 18895573 (Version 1)
Quarter: 2021Q1

REPORT INFORMATION
  Report Type: Spontaneous
  Country: NZ (occurrence: NZ)
  Receive Date: 20210216
  Receipt Date: 20210216
  Transmission Date: 20210420
  Serious: Yes (Other)
  Sender: FDA-Public Use
  Company Number: NZ-SA-2021SA047126

PATIENT
  Age: 70 Year
  Sex: Female

DRUGS (3)
  1. EPIRUBICIN [Suspect]
     Active Substance: EPIRUBICIN
  2. CAPECITABINE. [Suspect]
     Active Substance: CAPECITABINE
  3. OXALIPLATIN. [Suspect]
     Active Substance: OXALIPLATIN

REACTIONS (3)
  - Enterocolitis [Unknown]
  - Neutropenia [Unknown]
  - Thrombocytopenia [Unknown]
